FAERS Safety Report 21102649 (Version 1)
Quarter: 2022Q3

REPORT INFORMATION
  Report Type: Spontaneous
  Country: US (occurrence: US)
  Receive Date: 20220719
  Receipt Date: 20220719
  Transmission Date: 20221026
  Serious: Yes (Other)
  Sender: FDA-Public Use
  Company Number: US-SUN PHARMACEUTICAL INDUSTRIES LTD-2022R1-344800

PATIENT
  Age: 16 Year
  Sex: Female

DRUGS (15)
  1. ACETAMINOPHEN [Suspect]
     Active Substance: ACETAMINOPHEN
     Indication: Pyrexia
     Dosage: UNK
     Route: 065
  2. DEXAMETHASONE [Suspect]
     Active Substance: DEXAMETHASONE
     Dosage: 6 MILLIGRAM, BID
     Route: 065
  3. DEXAMETHASONE [Suspect]
     Active Substance: DEXAMETHASONE
     Indication: Maternal therapy to enhance foetal lung maturity
  4. DEXAMETHASONE [Suspect]
     Active Substance: DEXAMETHASONE
  5. NOREPINEPHRINE [Suspect]
     Active Substance: NOREPINEPHRINE
     Indication: Blood pressure management
     Dosage: UNK (3 UG/MIN)
     Route: 065
  6. NOREPINEPHRINE [Suspect]
     Active Substance: NOREPINEPHRINE
     Dosage: UNK (7 UG/MIN)
     Route: 065
  7. PREDNISONE [Suspect]
     Active Substance: PREDNISONE
     Indication: Product used for unknown indication
     Dosage: 15 MILLIGRAM, BID
     Route: 048
  8. PREDNISONE [Suspect]
     Active Substance: PREDNISONE
     Dosage: 15 MILLIGRAM, DAILY
     Route: 048
  9. CEFTRIAXONE [Suspect]
     Active Substance: CEFTRIAXONE
     Indication: Antibiotic therapy
     Dosage: 2 GRAM, DAILY
     Route: 042
  10. ENOXAPARIN SODIUM [Suspect]
     Active Substance: ENOXAPARIN SODIUM
     Indication: Anticoagulant therapy
     Dosage: 0.5 MILLIGRAM/KILOGRAM, BID
     Route: 065
  11. METHYLPREDNISOLONE [Suspect]
     Active Substance: METHYLPREDNISOLONE
     Indication: COVID-19
     Dosage: 30 MILLIGRAM, BID
     Route: 042
  12. VANCOMYCIN HYDROCHLORIDE [Suspect]
     Active Substance: VANCOMYCIN HYDROCHLORIDE
     Indication: Antibiotic therapy
     Dosage: UNK (1500 MG)
     Route: 065
  13. BETAMETHASONE [Suspect]
     Active Substance: BETAMETHASONE
     Dosage: 12 MILLIGRAM, DAILY
     Route: 065
  14. BETAMETHASONE [Suspect]
     Active Substance: BETAMETHASONE
     Indication: Maternal therapy to enhance foetal lung maturity
  15. BETAMETHASONE [Suspect]
     Active Substance: BETAMETHASONE

REACTIONS (3)
  - Foetal growth restriction [Recovering/Resolving]
  - Exposure during pregnancy [Unknown]
  - Live birth [Unknown]
